FAERS Safety Report 7636445-6 (Version None)
Quarter: 2011Q3

REPORT INFORMATION
  Report Type: 
  Country: None (occurrence: None)
  Receive Date: 20110726
  Receipt Date: 20110718
  Transmission Date: 20111222
  Serious: Yes (Hospitalization)
  Sender: FDA-Public Use
  Company Number: FR-BRISTOL-MYERS SQUIBB COMPANY-15912843

PATIENT
  Age: 66 Year
  Sex: Male

DRUGS (8)
  1. ALIMTA [Suspect]
     Indication: LUNG ADENOCARCINOMA
     Dosage: 2ND ON DEC10,3RD ON 16JAN2011
     Route: 042
     Dates: start: 20101101
  2. FOLIC ACID [Concomitant]
  3. PREDNISONE [Concomitant]
  4. ZOLPIDEM [Concomitant]
  5. BRISTOPEN CAPS 500 MG [Suspect]
     Indication: SUPERINFECTION
     Route: 048
     Dates: start: 20101230, end: 20110103
  6. IVERMECTIN [Suspect]
     Indication: RASH
     Dosage: STROMECTOL 3 MG TABLET
     Route: 048
     Dates: start: 20101229
  7. EMEND [Concomitant]
  8. CARBOPLATIN [Suspect]
     Indication: LUNG ADENOCARCINOMA
     Dosage: 2ND ON DEC10,3RD ON 16JAN2011
     Route: 042
     Dates: start: 20101101

REACTIONS (4)
  - HYPERKERATOSIS [None]
  - RASH [None]
  - THROMBOCYTOPENIA [None]
  - NEUTROPENIA [None]
